FAERS Safety Report 7276666-8 (Version None)
Quarter: 2011Q1

REPORT INFORMATION
  Report Type: 
  Country: None (occurrence: None)
  Receive Date: 20110204
  Receipt Date: 20110202
  Transmission Date: 20110831
  Serious: Yes (Hospitalization, Other)
  Sender: FDA-Public Use
  Company Number: ES-AMGEN-QUU427445

PATIENT
  Age: 48 Year
  Sex: Female

DRUGS (2)
  1. ERGOCALCIFEROL [Concomitant]
  2. CINACALCET HYDROCHLORIDE [Suspect]
     Indication: HYPERPARATHYROIDISM SECONDARY
     Dosage: 30 MG, 3 TIMES/WK

REACTIONS (10)
  - PERICARDITIS [None]
  - LOSS OF CONSCIOUSNESS [None]
  - CARDIAC TAMPONADE [None]
  - PLEURAL EFFUSION [None]
  - HYPERSENSITIVITY [None]
  - CARDIAC VENTRICULAR DISORDER [None]
  - PERICARDIAL EFFUSION [None]
  - CARDIAC FAILURE CONGESTIVE [None]
  - BRADYCARDIA [None]
  - HYPOTENSION [None]
